FAERS Safety Report 4715666-6 (Version None)
Quarter: 2005Q3

REPORT INFORMATION
  Report Type: 
  Country: None (occurrence: None)
  Receive Date: 20050713
  Receipt Date: 20050704
  Transmission Date: 20060218
  Serious: No
  Sender: FDA-Public Use
  Company Number: 2005-06-1992

PATIENT
  Age: 70 Year
  Sex: Female

DRUGS (4)
  1. CLARITIN [Suspect]
     Indication: HYPERSENSITIVITY
     Dosage: 1 TAB QD ORAL
     Route: 048
     Dates: start: 20050501, end: 20050601
  2. SYNTHROID [Concomitant]
  3. HYDRA-ZIDE [Concomitant]
  4. TEMAZEPAM [Concomitant]

REACTIONS (1)
  - AGEUSIA [None]
